FAERS Safety Report 15821740 (Version 1)
Quarter: 2019Q1

REPORT INFORMATION
  Report Type: Spontaneous
  Country: US (occurrence: US)
  Receive Date: 20190113
  Receipt Date: 20190113
  Transmission Date: 20190417
  Serious: Yes (Other)
  Sender: FDA-Public Use
  Company Number: None

PATIENT
  Age: 31 Year
  Sex: Female
  Weight: 70.2 kg

DRUGS (1)
  1. CIPROFLOXIAN [Suspect]
     Active Substance: CIPROFLOXACIN
     Indication: DEPRESCRIBING ERROR
     Dosage: ?          QUANTITY:10 TABLET(S);?
     Route: 048

REACTIONS (3)
  - Headache [None]
  - Pain [None]
  - Tinnitus [None]

NARRATIVE: CASE EVENT DATE: 20180923
